FAERS Safety Report 10044250 (Version 1)
Quarter: 2014Q1

REPORT INFORMATION
  Report Type: Spontaneous
  Country: JP (occurrence: None)
  Receive Date: 20140326
  Receipt Date: 20140326
  Transmission Date: 20141002
  Serious: Yes (Death)
  Sender: FDA-Public Use
  Company Number: 2014/018

PATIENT
  Sex: Male

DRUGS (5)
  1. OLANZAPINE [Suspect]
     Indication: SCHIZOPHRENIA
     Dosage: 15 MG/DAY, UNK + UNK
  2. HALOPERIDOL (NO PREF. NAME) 100 MG [Concomitant]
  3. RISPERDAL [Concomitant]
  4. FLUNITRAZEPAM (NO PREF. NAME) 1 MG [Concomitant]
  5. SENNOSIDE (NO PREF. NAME) 12 MG [Concomitant]

REACTIONS (7)
  - Water intoxication [None]
  - Hyponatraemia [None]
  - Vomiting [None]
  - Fall [None]
  - Snoring [None]
  - Brain oedema [None]
  - Pulmonary oedema [None]
